FAERS Safety Report 20199520 (Version 2)
Quarter: 2025Q4

REPORT INFORMATION
  Report Type: Spontaneous
  Country: US (occurrence: US)
  Receive Date: 20211217
  Receipt Date: 20251214
  Transmission Date: 20260118
  Serious: Yes (Other)
  Sender: AMGEN
  Company Number: US-AMGEN-USASP2021198132

PATIENT
  Age: 19 Year
  Sex: Male

DRUGS (2)
  1. BLINATUMOMAB [Suspect]
     Active Substance: BLINATUMOMAB
     Indication: B precursor type acute leukaemia
     Dosage: UNK
     Route: 065
  2. FILGRASTIM [Suspect]
     Active Substance: FILGRASTIM
     Indication: Acute leukaemia
     Dosage: UNK
     Route: 065

REACTIONS (5)
  - Minimal residual disease [Unknown]
  - Spinal cord compression [Recovering/Resolving]
  - Haematopoietic neoplasm [Unknown]
  - Acute biphenotypic leukaemia [Unknown]
  - Chloroma [Recovering/Resolving]
